FAERS Safety Report 7535879-8 (Version None)
Quarter: 2011Q2

REPORT INFORMATION
  Report Type: 
  Country: None (occurrence: None)
  Receive Date: 20110524
  Receipt Date: 20110222
  Transmission Date: 20111010
  Serious: Yes (Hospitalization)
  Sender: FDA-Public Use
  Company Number: 010377

PATIENT
  Sex: Female

DRUGS (5)
  1. CIMZIA [Suspect]
  2. CIMZIA [Suspect]
     Indication: CROHN'S DISEASE
     Dosage: (400 MG 1X/2 WEEKS SUBCUTANEOUS) ; (200 1X/2 WEEKS SUBCUTANEOUS)
     Route: 058
     Dates: start: 20090818, end: 20090915
  3. CIMZIA [Suspect]
     Indication: COLITIS ULCERATIVE
     Dosage: (400 MG 1X/2 WEEKS SUBCUTANEOUS) ; (200 1X/2 WEEKS SUBCUTANEOUS)
     Route: 058
     Dates: start: 20090818, end: 20090915
  4. CIMZIA [Suspect]
     Indication: CROHN'S DISEASE
     Dosage: (400 MG 1X/2 WEEKS SUBCUTANEOUS) ; (200 1X/2 WEEKS SUBCUTANEOUS)
     Route: 058
     Dates: start: 20100524
  5. CIMZIA [Suspect]
     Indication: COLITIS ULCERATIVE
     Dosage: (400 MG 1X/2 WEEKS SUBCUTANEOUS) ; (200 1X/2 WEEKS SUBCUTANEOUS)
     Route: 058
     Dates: start: 20100524

REACTIONS (7)
  - PALLOR [None]
  - ABDOMINAL PAIN [None]
  - WEIGHT DECREASED [None]
  - DYSPHAGIA [None]
  - FATIGUE [None]
  - DIARRHOEA [None]
  - NAUSEA [None]
